FAERS Safety Report 13330775 (Version 1)
Quarter: 2017Q1

REPORT INFORMATION
  Report Type: Spontaneous
  Country: JP (occurrence: JP)
  Receive Date: 20170313
  Receipt Date: 20170313
  Transmission Date: 20170428
  Serious: Yes (Other)
  Sender: FDA-Public Use
  Company Number: JP-PFIZER INC-2017094859

PATIENT
  Weight: 60 kg

DRUGS (3)
  1. VFEND [Interacting]
     Active Substance: VORICONAZOLE
     Dosage: 200 MG, DAILY
     Route: 041
     Dates: start: 20170302, end: 20170307
  2. VFEND [Suspect]
     Active Substance: VORICONAZOLE
     Indication: ASPERGILLUS INFECTION
     Dosage: 360 MG, LOADING DOSE
     Route: 041
     Dates: start: 20170301, end: 20170301
  3. OLMETEC [Interacting]
     Active Substance: OLMESARTAN MEDOXOMIL
     Dosage: UNK

REACTIONS (3)
  - Renal impairment [Unknown]
  - Drug interaction [Unknown]
  - Blood pressure decreased [Recovered/Resolved]

NARRATIVE: CASE EVENT DATE: 20170302
